FAERS Safety Report 12531323 (Version 4)
Quarter: 2018Q2

REPORT INFORMATION
  Report Type: Spontaneous
  Country: BR (occurrence: BR)
  Receive Date: 20160706
  Receipt Date: 20180614
  Transmission Date: 20180711
  Serious: Yes (Hospitalization, Other)
  Sender: FDA-Public Use
  Company Number: BR-JNJFOC-20160225051

PATIENT
  Sex: Female
  Weight: 62 kg

DRUGS (5)
  1. SIMPONI [Suspect]
     Active Substance: GOLIMUMAB
     Indication: RHEUMATOID ARTHRITIS
     Route: 058
     Dates: start: 201705, end: 201802
  2. DIPYRONE [Concomitant]
     Active Substance: DIPYRONE
     Route: 065
  3. SIMPONI [Suspect]
     Active Substance: GOLIMUMAB
     Indication: RHEUMATOID ARTHRITIS
     Route: 058
     Dates: start: 20150926
  4. MELOXICAM. [Concomitant]
     Active Substance: MELOXICAM
     Route: 065
  5. CODEINE [Concomitant]
     Active Substance: CODEINE
     Route: 065

REACTIONS (7)
  - Breast cyst [Unknown]
  - Spinal pain [Unknown]
  - Fallopian tube cyst [Unknown]
  - Drug ineffective [Unknown]
  - Arthralgia [Unknown]
  - Renal cyst [Unknown]
  - Haemorrhage [Unknown]

NARRATIVE: CASE EVENT DATE: 2015
